FAERS Safety Report 12848689 (Version 1)
Quarter: 2016Q4

REPORT INFORMATION
  Report Type: Spontaneous
  Country: US (occurrence: US)
  Receive Date: 20161014
  Receipt Date: 20161014
  Transmission Date: 20170207
  Serious: No
  Sender: FDA-Public Use
  Company Number: US-JNJFOC-20160912894

PATIENT
  Age: 70 Year
  Sex: Male
  Weight: 61.69 kg

DRUGS (2)
  1. TYLENOL [Suspect]
     Active Substance: ACETAMINOPHEN
     Indication: SINUS DISORDER
     Route: 048
     Dates: start: 20160908
  2. TYLENOL [Suspect]
     Active Substance: ACETAMINOPHEN
     Indication: RHINORRHOEA
     Route: 048
     Dates: start: 20160908

REACTIONS (3)
  - Intentional product use issue [Unknown]
  - Therapeutic response unexpected [Unknown]
  - Intentional product misuse [Unknown]
